FAERS Safety Report 23436650 (Version 1)
Quarter: 2024Q1

REPORT INFORMATION
  Report Type: Spontaneous
  Country: US (occurrence: US)
  Receive Date: 20240124
  Receipt Date: 20240124
  Transmission Date: 20240410
  Serious: No
  Sender: FDA-Public Use
  Company Number: US-HALEON-USCH2024003340

PATIENT

DRUGS (5)
  1. ADVIL [Suspect]
     Active Substance: IBUPROFEN
     Indication: Illness
     Dosage: UNK
  2. ADVIL [Suspect]
     Active Substance: IBUPROFEN
     Indication: Pain
  3. ADVIL [Suspect]
     Active Substance: IBUPROFEN
     Indication: Pyrexia
  4. ADVIL [Suspect]
     Active Substance: IBUPROFEN
     Indication: Inflammation
  5. ADVIL [Suspect]
     Active Substance: IBUPROFEN
     Indication: Injury

REACTIONS (2)
  - Product use in unapproved indication [Unknown]
  - Drug effective for unapproved indication [Unknown]
